FAERS Safety Report 6043421-6 (Version None)
Quarter: 2009Q1

REPORT INFORMATION
  Report Type: 
  Country: None (occurrence: None)
  Receive Date: 20090115
  Receipt Date: 20090115
  Transmission Date: 20090719
  Serious: No
  Sender: FDA-Public Use
  Company Number: None

PATIENT
  Age: 71 Year
  Sex: Female
  Weight: 68.0396 kg

DRUGS (5)
  1. CASPOFUNGIN [Suspect]
     Indication: CANDIDIASIS
     Dosage: 50 MG Q24H IV
     Route: 042
     Dates: start: 20081204, end: 20081218
  2. NEXIUM [Concomitant]
  3. SYNTHROID [Concomitant]
  4. MORPHINE [Concomitant]
  5. FLAGYL [Concomitant]

REACTIONS (1)
  - BLOOD ALKALINE PHOSPHATASE INCREASED [None]
